FAERS Safety Report 5017966-1 (Version None)
Quarter: 2006Q2

REPORT INFORMATION
  Report Type: 
  Country: None (occurrence: None)
  Receive Date: 20060605
  Receipt Date: 20060524
  Transmission Date: 20061013
  Serious: Yes (Hospitalization)
  Sender: FDA-Public Use
  Company Number: FR-GLAXOSMITHKLINE-B0425393A

PATIENT
  Age: 83 Year
  Sex: Female
  Weight: 60 kg

DRUGS (12)
  1. DEROXAT [Suspect]
     Dosage: 20MG PER DAY
     Route: 048
     Dates: end: 20060220
  2. VEINAMITOL [Suspect]
     Dosage: 1UNIT PER DAY
     Route: 048
     Dates: end: 20060220
  3. COVERSYL [Suspect]
     Dosage: 4MG PER DAY
     Route: 048
     Dates: end: 20060220
  4. FOSAMAX [Suspect]
     Dosage: 1UNIT WEEKLY
     Route: 048
     Dates: end: 20060220
  5. TAREG [Suspect]
     Dosage: 80MG PER DAY
     Route: 048
     Dates: end: 20060220
  6. PREVISCAN [Suspect]
     Dosage: 10MG PER DAY
     Route: 048
     Dates: end: 20060212
  7. PRAVASTATIN [Concomitant]
     Dosage: 40MG PER DAY
     Route: 048
  8. HYPERIUM [Concomitant]
     Dosage: 1TAB PER DAY
     Route: 048
  9. XANAX [Concomitant]
     Dosage: .75MG PER DAY
     Route: 048
  10. CACIT D3 [Concomitant]
     Dosage: 2UNIT PER DAY
     Route: 065
  11. FORLAX [Concomitant]
     Route: 065
  12. ACETAMINOPHEN AND TRAMADOL HCL [Concomitant]
     Dosage: 4UNIT PER DAY
     Route: 065

REACTIONS (6)
  - AMNESIA [None]
  - APRAXIA [None]
  - CEREBRAL HAEMORRHAGE [None]
  - FALL [None]
  - HYPERTENSION [None]
  - SENSORIMOTOR DISORDER [None]
